FAERS Safety Report 13005515 (Version 2)
Quarter: 2017Q1

REPORT INFORMATION
  Report Type: Spontaneous
  Country: US (occurrence: US)
  Receive Date: 20161207
  Receipt Date: 20170127
  Transmission Date: 20170428
  Serious: No
  Sender: FDA-Public Use
  Company Number: US-JNJFOC-20161108204

PATIENT
  Sex: Female
  Weight: 68.68 kg

DRUGS (2)
  1. SIMPONI [Suspect]
     Active Substance: GOLIMUMAB
     Indication: COLITIS ULCERATIVE
     Route: 058
  2. SIMPONI [Suspect]
     Active Substance: GOLIMUMAB
     Indication: COLITIS ULCERATIVE
     Route: 058
     Dates: start: 201410

REACTIONS (9)
  - Off label use [Unknown]
  - Product use issue [Unknown]
  - Colitis ulcerative [Unknown]
  - Dyschezia [Unknown]
  - Skin lesion [Unknown]
  - Frequent bowel movements [Unknown]
  - Proctalgia [Unknown]
  - Haematochezia [Unknown]
  - Drug effect decreased [Unknown]
